FAERS Safety Report 11782175 (Version 1)
Quarter: 2015Q4

REPORT INFORMATION
  Report Type: Spontaneous
  Country: GB (occurrence: GB)
  Receive Date: 20151127
  Receipt Date: 20151127
  Transmission Date: 20160305
  Serious: Yes (Hospitalization)
  Sender: FDA-Public Use
  Company Number: GB-AMGEN-GBRSP2015124600

PATIENT
  Age: 75 Year
  Sex: Female

DRUGS (1)
  1. ARANESP [Suspect]
     Active Substance: DARBEPOETIN ALFA
     Indication: PRODUCT USED FOR UNKNOWN INDICATION
     Dosage: 40 MCG/0.4ML
     Route: 065

REACTIONS (4)
  - Joint injury [Unknown]
  - Upper limb fracture [Unknown]
  - Musculoskeletal disorder [Unknown]
  - Fall [Unknown]

NARRATIVE: CASE EVENT DATE: 201510
